FAERS Safety Report 24630489 (Version 1)
Quarter: 2024Q4

REPORT INFORMATION
  Report Type: Report from Study
  Country: US (occurrence: US)
  Receive Date: 20241118
  Receipt Date: 20241118
  Transmission Date: 20250115
  Serious: Yes (Other)
  Sender: BAYER HEALTHCARE PHARMACEUTICALS INC.
  Company Number: US-BAYER-2024A163632

PATIENT
  Sex: Female
  Weight: 81.633 kg

DRUGS (23)
  1. ADEMPAS [Suspect]
     Active Substance: RIOCIGUAT
     Indication: Pulmonary arterial hypertension
     Dosage: UNK
     Dates: start: 20230224
  2. ADEMPAS [Suspect]
     Active Substance: RIOCIGUAT
     Indication: Pulmonary arterial hypertension
     Dosage: 2.5 MG, TID
     Route: 048
  3. MOUNJARO [Suspect]
     Active Substance: TIRZEPATIDE
  4. CELEBREX [Concomitant]
     Active Substance: CELECOXIB
  5. UPTRAVI [Concomitant]
     Active Substance: SELEXIPAG
  6. COLCHICINE [Concomitant]
     Active Substance: COLCHICINE
  7. FLUBLOK QUADRIVALENT NOS [Concomitant]
     Active Substance: INFLUENZA VIRUS VACCINE
  8. ALLOPURINOL [Concomitant]
     Active Substance: ALLOPURINOL
  9. PFIZER-BIONTECH COVID-19 VACCINE [Concomitant]
     Active Substance: TOZINAMERAN
  10. CYANOCOBALAMIN [Concomitant]
     Active Substance: CYANOCOBALAMIN
  11. COLLAGEN RENEW WITH VITAMIN C [Concomitant]
  12. ALEVE [Concomitant]
     Active Substance: NAPROXEN SODIUM
  13. LASIX [Concomitant]
     Active Substance: FUROSEMIDE
  14. VITAMIN D3 [Concomitant]
     Active Substance: CHOLECALCIFEROL
  15. TRAMADOL HCL [Concomitant]
     Active Substance: TRAMADOL HYDROCHLORIDE
  16. XANAX [Concomitant]
     Active Substance: ALPRAZOLAM
  17. OPSUMIT [Concomitant]
     Active Substance: MACITENTAN
  18. OXYGEN [Concomitant]
     Active Substance: OXYGEN
  19. VITAMIN B12 [Concomitant]
     Active Substance: CYANOCOBALAMIN
  20. IBUPROFEN [Concomitant]
     Active Substance: IBUPROFEN
  21. CYCLOBENZAPRINE HYDROCHLORIDE [Concomitant]
     Active Substance: CYCLOBENZAPRINE HYDROCHLORIDE
  22. INFLUENZA VIRUS VACCINE [Concomitant]
     Active Substance: INFLUENZA VIRUS VACCINE
     Dosage: UNK
     Dates: start: 20241001
  23. COVID-19 vaccine RVV [Concomitant]
     Dosage: UNK
     Dates: start: 20241001

REACTIONS (7)
  - Listeriosis [None]
  - Paraesthesia [None]
  - Myalgia [None]
  - Weight decreased [None]
  - Cardiac ablation [None]
  - Ventricular hypertrophy [Recovered/Resolved]
  - Back pain [Recovering/Resolving]
